FAERS Safety Report 23366362 (Version 1)
Quarter: 2024Q1

REPORT INFORMATION
  Report Type: Spontaneous
  Country: CN (occurrence: CN)
  Receive Date: 20240104
  Receipt Date: 20240104
  Transmission Date: 20240409
  Serious: Yes (Life-Threatening)
  Sender: FDA-Public Use
  Company Number: CN-Merck Healthcare KGaA-2024000122

PATIENT
  Age: 68 Year
  Sex: Female

DRUGS (5)
  1. ERBITUX [Suspect]
     Active Substance: CETUXIMAB
     Indication: Colon cancer
     Dosage: 600 MG, UNK
     Route: 041
     Dates: start: 20231208
  2. OXALIPLATIN [Suspect]
     Active Substance: OXALIPLATIN
     Indication: Colon cancer
     Dosage: 110 MG, DAILY
     Route: 041
     Dates: start: 20231208
  3. IRINOTECAN HYDROCHLORIDE [Suspect]
     Active Substance: IRINOTECAN HYDROCHLORIDE
     Indication: Colon cancer
     Dosage: .19 G, DAILY
     Route: 041
     Dates: start: 20231208
  4. FLUOROURACIL [Suspect]
     Active Substance: FLUOROURACIL
     Indication: Colon cancer
     Dosage: 3 G, DAILY
     Route: 041
     Dates: start: 20231208
  5. LEVOLEUCOVORIN CALCIUM [Concomitant]
     Active Substance: LEVOLEUCOVORIN CALCIUM
     Indication: Product used for unknown indication
     Dosage: 300 MG, DAILY
     Route: 041
     Dates: start: 20231208

REACTIONS (2)
  - Neutrophil count decreased [Recovering/Resolving]
  - White blood cell count decreased [Recovering/Resolving]

NARRATIVE: CASE EVENT DATE: 20231223
